FAERS Safety Report 7177418-X (Version None)
Quarter: 2010Q4

REPORT INFORMATION
  Report Type: 
  Country: None (occurrence: None)
  Receive Date: 20101216
  Receipt Date: 20101216
  Transmission Date: 20110411
  Serious: Yes (Disabling)
  Sender: FDA-Public Use
  Company Number: None

PATIENT
  Sex: Male
  Weight: 113 kg

DRUGS (10)
  1. RITUXIMAB (ANTI-CD20) GENENTECH [Suspect]
     Indication: NERVOUS SYSTEM DISORDER
     Dosage: 375 MG/M2 1 X 4 WK IV INFUSION
     Route: 042
     Dates: start: 20021116, end: 20021207
  2. RITUXIMAB (ANTI-CD20) GENENTECH [Suspect]
     Indication: OPSOCLONUS MYOCLONUS
     Dosage: 375 MG/M2 1 X 4 WK IV INFUSION
     Route: 042
     Dates: start: 20021116, end: 20021207
  3. COGENTIN [Concomitant]
  4. TENEX [Concomitant]
  5. ZYPREXA [Concomitant]
  6. LAMICTAL [Concomitant]
  7. TERAZOSIN HCL [Concomitant]
  8. CELEXA [Concomitant]
  9. CELLCEPT [Concomitant]
  10. ACTH [Concomitant]

REACTIONS (1)
  - HYPOGAMMAGLOBULINAEMIA [None]
